FAERS Safety Report 5033499-0 (Version None)
Quarter: 2006Q2

REPORT INFORMATION
  Report Type: 
  Country: None (occurrence: None)
  Receive Date: 20060623
  Receipt Date: 20060426
  Transmission Date: 20061013
  Serious: Yes (Hospitalization)
  Sender: FDA-Public Use
  Company Number: MX-BRISTOL-MYERS SQUIBB COMPANY-13357264

PATIENT
  Age: 46 Year
  Sex: Female

DRUGS (4)
  1. ORENCIA [Suspect]
     Indication: RHEUMATOID ARTHRITIS
     Route: 042
     Dates: start: 20040330
  2. METHOTREXATE [Suspect]
     Route: 048
     Dates: start: 20010613
  3. PREDNISONE [Concomitant]
     Dates: start: 20030429
  4. NAPROXEN [Concomitant]
     Dates: start: 19991123

REACTIONS (1)
  - POLYNEUROPATHY [None]
